FAERS Safety Report 9382253 (Version 2)
Quarter: 2013Q3

REPORT INFORMATION
  Report Type: Spontaneous
  Country: US (occurrence: US)
  Receive Date: 20130703
  Receipt Date: 20130709
  Transmission Date: 20140515
  Serious: Yes (Hospitalization)
  Sender: FDA-Public Use
  Company Number: US-GILEAD-2013-0077900

PATIENT
  Sex: Female

DRUGS (4)
  1. LETAIRIS [Suspect]
     Indication: PRODUCT USED FOR UNKNOWN INDICATION
     Dosage: 5 MG, QD
     Dates: start: 20130530
  2. LETAIRIS [Suspect]
  3. TYVASO [Concomitant]
  4. REVATIO [Concomitant]

REACTIONS (3)
  - Headache [Unknown]
  - Nausea [Unknown]
  - Abdominal discomfort [Unknown]
